FAERS Safety Report 6382928-9 (Version None)
Quarter: 2009Q3

REPORT INFORMATION
  Report Type: 
  Country: None (occurrence: None)
  Receive Date: 20090930
  Receipt Date: 20090917
  Transmission Date: 20100115
  Serious: Yes (Death)
  Sender: FDA-Public Use
  Company Number: DE-PFIZER INC-2009270353

PATIENT
  Age: 77 Year

DRUGS (11)
  1. CLINDAMYCIN PHOSPHATE [Suspect]
     Dosage: 600 MG, 3X/DAY
  2. AMIODARONE [Suspect]
     Indication: ATRIAL FIBRILLATION
     Dosage: 200 MG, 1X/DAY
  3. MARCUMAR [Suspect]
  4. ATROVENT [Concomitant]
     Dosage: 500 UG, 3X/DAY
  5. BENALAPRIL [Concomitant]
     Dosage: 10 MG, 1X/DAY
  6. EUTHROID-1 [Concomitant]
     Dosage: 1 DF, 1X/DAY
  7. FLUCTIN [Concomitant]
     Dosage: 40 MG, 1X/DAY
  8. FUROSEMIDE [Concomitant]
     Dosage: 20 MG, 3X/DAY
  9. PULMICORT [Concomitant]
     Dosage: 200 UG, 4X/DAY
  10. SALBUTAMOL [Concomitant]
     Dosage: 100 UG, 6X/DAY
  11. SPIRONOLACTONE [Concomitant]
     Dosage: 25 MG, 1X/DAY

REACTIONS (1)
  - HEPATIC FAILURE [None]
